FAERS Safety Report 6814625-7 (Version None)
Quarter: 2010Q3

REPORT INFORMATION
  Report Type: 
  Country: None (occurrence: None)
  Receive Date: 20100702
  Receipt Date: 20100622
  Transmission Date: 20110219
  Serious: Yes (Hospitalization)
  Sender: FDA-Public Use
  Company Number: FR-PFIZER INC-2010077465

PATIENT
  Age: 56 Year
  Sex: Male

DRUGS (6)
  1. CLINDAMYCIN HCL [Suspect]
     Indication: OSTEITIS
     Dosage: 600 MG, 4X/DAY
     Route: 042
     Dates: start: 20100515, end: 20100524
  2. TARGOCID [Suspect]
     Indication: OSTEITIS
     Dosage: 700 MG, 2X/DAY
     Route: 042
     Dates: start: 20100512, end: 20100514
  3. TARGOCID [Suspect]
     Dosage: 600 MG, 1X/DAY
     Route: 042
     Dates: start: 20100515, end: 20100524
  4. CEFEPIME [Suspect]
     Indication: OSTEITIS
     Dosage: 2 G, 3X/DAY
     Route: 042
     Dates: start: 20100512, end: 20100519
  5. NETROMYCIN [Concomitant]
  6. AERIUS [Concomitant]
     Dosage: UNK

REACTIONS (4)
  - DIARRHOEA [None]
  - PRURITUS [None]
  - RASH MORBILLIFORM [None]
  - VOMITING [None]
